FAERS Safety Report 17627469 (Version 3)
Quarter: 2021Q2

REPORT INFORMATION
  Report Type: Spontaneous
  Country: US (occurrence: US)
  Receive Date: 20200405
  Receipt Date: 20210413
  Transmission Date: 20210716
  Serious: Yes (Other)
  Sender: FDA-Public Use
  Company Number: US-AMGEN-USASP2020052863

PATIENT
  Age: 45 Year
  Sex: Female

DRUGS (5)
  1. MYCOPHENOLATE MOFETIL. [Concomitant]
     Active Substance: MYCOPHENOLATE MOFETIL
     Dosage: UNK
  2. CARFILZOMIB [Suspect]
     Active Substance: CARFILZOMIB
     Indication: IMMUNE TOLERANCE INDUCTION
     Dosage: 20 MILLIGRAM/SQ. METER ON DAYS 1, 2, 8, 9, 15, AND 16
     Route: 065
  3. TACROLIMUS. [Concomitant]
     Active Substance: TACROLIMUS
     Dosage: UNK
  4. RITUXIMAB. [Concomitant]
     Active Substance: RITUXIMAB
     Dosage: UNK
  5. GLOBULIN [Concomitant]
     Indication: IMMUNE TOLERANCE INDUCTION
     Dosage: 2 GRAM PER KILOGRAM

REACTIONS (4)
  - Panel-reactive antibody increased [Unknown]
  - Anti-HLA antibody test positive [Unknown]
  - Off label use [Unknown]
  - Vascular device infection [Recovered/Resolved]
